FAERS Safety Report 8820716 (Version 2)
Quarter: 2012Q4

REPORT INFORMATION
  Report Type: 
  Country: FR (occurrence: FR)
  Receive Date: 20121002
  Receipt Date: 20121023
  Transmission Date: 20130627
  Serious: Yes (Other)
  Sender: FDA-Public Use
  Company Number: PHHY2012FR084426

PATIENT
  Age: 40 Year
  Sex: Female

DRUGS (2)
  1. GILENYA [Suspect]
     Indication: MULTIPLE SCLEROSIS
     Dosage: 0.5 mg, QD
     Route: 048
     Dates: start: 20120414
  2. DITROPAN [Concomitant]
     Indication: BLADDER DISORDER
     Dosage: 2 DF, daily
     Dates: start: 2005

REACTIONS (5)
  - Hypertensive crisis [Recovered/Resolved]
  - Hypertension [Recovered/Resolved]
  - Swelling [Recovered/Resolved]
  - Erythrosis [Recovered/Resolved]
  - Headache [Recovered/Resolved]
